FAERS Safety Report 5708750-1 (Version None)
Quarter: 2008Q2

REPORT INFORMATION
  Report Type: 
  Country: None (occurrence: None)
  Receive Date: 20080416
  Receipt Date: 20080403
  Transmission Date: 20081010
  Serious: Yes (Hospitalization)
  Sender: FDA-Public Use
  Company Number: 2008-174940-NL

PATIENT
  Age: 76 Year
  Sex: Male

DRUGS (3)
  1. MIRTAZAPINE [Suspect]
     Indication: MAJOR DEPRESSION
     Dosage: 15 MG/37.5 MG/45 MG ORAL
     Route: 048
     Dates: start: 20080228, end: 20080228
  2. MIRTAZAPINE [Suspect]
     Indication: MAJOR DEPRESSION
     Dosage: 15 MG/37.5 MG/45 MG ORAL
     Route: 048
     Dates: start: 20071101
  3. VENLAFAXINE HYDROCHLORIDE [Suspect]
     Dosage: 75 MG TID ORAL
     Route: 048
     Dates: end: 20080228

REACTIONS (3)
  - HYPERHIDROSIS [None]
  - HYPONATRAEMIA [None]
  - SOMNOLENCE [None]
